FAERS Safety Report 20330298 (Version 3)
Quarter: 2022Q1

REPORT INFORMATION
  Report Type: Report from Study
  Country: IT (occurrence: IT)
  Receive Date: 20220113
  Receipt Date: 20220120
  Transmission Date: 20220423
  Serious: Yes (Death, Other)
  Sender: FDA-Public Use
  Company Number: None

PATIENT
  Age: 75 Year
  Sex: Male
  Weight: 110 kg

DRUGS (1)
  1. NIVOLUMAB [Suspect]
     Active Substance: NIVOLUMAB
     Indication: Malignant melanoma
     Dosage: 3 MILLIGRAM/KILOGRAM (CYCLICAL)
     Route: 042
     Dates: start: 20180111, end: 20180208

REACTIONS (8)
  - Rhabdomyolysis [Fatal]
  - Atrial flutter [Fatal]
  - Myocarditis [Fatal]
  - Diaphragmatic paralysis [Fatal]
  - Pericarditis [Fatal]
  - Dyspnoea [Fatal]
  - Hypotension [Fatal]
  - Off label use [Unknown]

NARRATIVE: CASE EVENT DATE: 20180218
